APPROVED DRUG PRODUCT: PRINZIDE
Active Ingredient: HYDROCHLOROTHIAZIDE; LISINOPRIL
Strength: 12.5MG;10MG **Federal Register determination that product was not discontinued or withdrawn for safety or effectiveness reasons**
Dosage Form/Route: TABLET;ORAL
Application: N019778 | Product #003
Applicant: MERCK RESEARCH LABORATORIES DIV MERCK CO INC
Approved: Nov 18, 1993 | RLD: Yes | RS: No | Type: DISCN